FAERS Safety Report 6845702-2 (Version None)
Quarter: 2010Q3

REPORT INFORMATION
  Report Type: 
  Country: None (occurrence: None)
  Receive Date: 20100715
  Receipt Date: 20070825
  Transmission Date: 20110219
  Serious: No
  Sender: FDA-Public Use
  Company Number: US-PFIZER INC-2007072316

PATIENT
  Sex: Female
  Weight: 84.1 kg

DRUGS (4)
  1. CHANTIX [Suspect]
     Indication: SMOKING CESSATION THERAPY
     Dates: start: 20070725
  2. OS-CAL [Concomitant]
  3. PRILOSEC [Concomitant]
     Indication: GASTROOESOPHAGEAL REFLUX DISEASE
  4. VIVELLE-DOT [Concomitant]
     Indication: HYSTERECTOMY

REACTIONS (3)
  - ABNORMAL DREAMS [None]
  - SLEEP DISORDER [None]
  - WEIGHT INCREASED [None]
